FAERS Safety Report 16266749 (Version 3)
Quarter: 2022Q1

REPORT INFORMATION
  Report Type: Report from Study
  Country: JP (occurrence: JP)
  Receive Date: 20190502
  Receipt Date: 20220225
  Transmission Date: 20220423
  Serious: Yes (Other)
  Sender: FDA-Public Use
  Company Number: JP-JNJFOC-20190441225

PATIENT
  Sex: Male

DRUGS (2)
  1. ABIRATERONE ACETATE [Suspect]
     Active Substance: ABIRATERONE ACETATE
     Indication: Hormone-refractory prostate cancer
     Route: 048
  2. PREDNISONE [Suspect]
     Active Substance: PREDNISONE
     Indication: Hormone-refractory prostate cancer
     Route: 065

REACTIONS (19)
  - Deafness neurosensory [Unknown]
  - Macular fibrosis [Unknown]
  - Duodenal ulcer [Unknown]
  - Diverticular perforation [Unknown]
  - Erythema multiforme [Unknown]
  - Decreased appetite [Unknown]
  - Pleural effusion [Unknown]
  - Rash maculo-papular [Unknown]
  - Anaemia [Unknown]
  - Hypophosphataemia [Unknown]
  - Face oedema [Unknown]
  - Malaise [Unknown]
  - Aspartate aminotransferase increased [Unknown]
  - Nausea [Unknown]
  - Oedema peripheral [Unknown]
  - Alanine aminotransferase increased [Unknown]
  - Dysgeusia [Unknown]
  - Diarrhoea [Unknown]
  - Rash [Unknown]
